FAERS Safety Report 16607928 (Version 1)
Quarter: 2019Q3

REPORT INFORMATION
  Report Type: Spontaneous
  Country: US (occurrence: US)
  Receive Date: 20190719
  Receipt Date: 20190719
  Transmission Date: 20191004
  Serious: No
  Sender: FDA-Public Use
  Company Number: None

PATIENT
  Age: 59 Year
  Sex: Male
  Weight: 83.25 kg

DRUGS (7)
  1. ASPIRIN. [Concomitant]
     Active Substance: ASPIRIN
  2. LEVOFLOXACIN. [Suspect]
     Active Substance: LEVOFLOXACIN
     Indication: PYREXIA
     Dosage: ?          QUANTITY:10 TABLET(S);?
     Route: 048
  3. POSTIIVE AIRWAY CPAP [Concomitant]
  4. CIALIS [Concomitant]
     Active Substance: TADALAFIL
  5. METHIMAZOLE. [Concomitant]
     Active Substance: METHIMAZOLE
  6. LEVOFLOXACIN. [Suspect]
     Active Substance: LEVOFLOXACIN
     Indication: COUGH
     Dosage: ?          QUANTITY:10 TABLET(S);?
     Route: 048
  7. MULTIVITAMIN [Concomitant]
     Active Substance: VITAMINS

REACTIONS (3)
  - Hypoaesthesia [None]
  - Arthralgia [None]
  - Paraesthesia [None]

NARRATIVE: CASE EVENT DATE: 20190515
